FAERS Safety Report 24758527 (Version 1)
Quarter: 2024Q4

REPORT INFORMATION
  Report Type: Spontaneous
  Country: US (occurrence: US)
  Receive Date: 20241220
  Receipt Date: 20241220
  Transmission Date: 20250114
  Serious: No
  Sender: UCB
  Company Number: US-UCBSA-2024052721

PATIENT
  Sex: Male

DRUGS (1)
  1. BIMZELX [Suspect]
     Active Substance: BIMEKIZUMAB-BKZX
     Indication: Psoriasis
     Dosage: 320 MILLIGRAM, EV 4 WEEKS
     Route: 058
     Dates: start: 202409

REACTIONS (5)
  - Influenza like illness [Unknown]
  - Feeling abnormal [Not Recovered/Not Resolved]
  - Adverse drug reaction [Not Recovered/Not Resolved]
  - Abdominal discomfort [Unknown]
  - Diarrhoea [Unknown]

NARRATIVE: CASE EVENT DATE: 20240101
